FAERS Safety Report 5389309-5 (Version None)
Quarter: 2007Q3

REPORT INFORMATION
  Report Type: 
  Country: None (occurrence: None)
  Receive Date: 20070717
  Receipt Date: 20070716
  Transmission Date: 20080115
  Serious: Yes (Other)
  Sender: FDA-Public Use
  Company Number: A0663889A

PATIENT
  Age: 28 Year
  Sex: Male

DRUGS (1)
  1. AQUAFRESH WHITE TRAYS [Suspect]

REACTIONS (4)
  - GINGIVAL ATROPHY [None]
  - GINGIVAL DISCOLOURATION [None]
  - GINGIVAL PAIN [None]
  - ORAL MUCOSAL EXFOLIATION [None]
